FAERS Safety Report 5073973-4 (Version None)
Quarter: 2006Q3

REPORT INFORMATION
  Report Type: 
  Country: None (occurrence: None)
  Receive Date: 20060808
  Receipt Date: 20060627
  Transmission Date: 20061208
  Serious: Yes (Other)
  Sender: FDA-Public Use
  Company Number: 2006UW13762

PATIENT
  Sex: Female

DRUGS (2)
  1. XYLOCAINE [Suspect]
     Indication: LOCAL ANAESTHESIA
     Route: 042
     Dates: start: 20060626, end: 20060626
  2. XYLOCAINE [Suspect]
     Indication: GENERAL ANAESTHESIA
     Route: 042
     Dates: start: 20060626, end: 20060626

REACTIONS (3)
  - DELAYED RECOVERY FROM ANAESTHESIA [None]
  - HYPOAESTHESIA [None]
  - INCISION SITE HAEMORRHAGE [None]
